FAERS Safety Report 6964508-7 (Version None)
Quarter: 2010Q3

REPORT INFORMATION
  Report Type: 
  Country: None (occurrence: None)
  Receive Date: 20100903
  Receipt Date: 20100825
  Transmission Date: 20110219
  Serious: Yes (Hospitalization)
  Sender: FDA-Public Use
  Company Number: ZA-SOLVAY-00210005317

PATIENT
  Age: 564 Month
  Sex: Male

DRUGS (2)
  1. ADALAT CC [Suspect]
     Indication: HYPERTENSION
     Dosage: DAILY DOSE:  UNKNOWN
     Route: 065
     Dates: end: 20100101
  2. COVERSYL NOS [Suspect]
     Indication: HYPERTENSION
     Dosage: DAILY DOSE:  UNKNOWN
     Route: 048
     Dates: end: 20100101

REACTIONS (3)
  - BLOOD PRESSURE INADEQUATELY CONTROLLED [None]
  - DIABETES MELLITUS [None]
  - GASTROINTESTINAL HAEMORRHAGE [None]
